FAERS Safety Report 10884943 (Version 1)
Quarter: 2015Q1

REPORT INFORMATION
  Report Type: Report from Study
  Country: AU (occurrence: AU)
  Receive Date: 20150304
  Receipt Date: 20150304
  Transmission Date: 20150721
  Serious: Yes (Hospitalization)
  Sender: FDA-Public Use
  Company Number: AU-SA-2015SA025103

PATIENT
  Sex: Male

DRUGS (2)
  1. LANTUS [Suspect]
     Active Substance: INSULIN GLARGINE
     Dosage: DOSE: 22 UNITS IN MORNING AND 13UNITS IN EVENING
     Route: 065
     Dates: start: 20100615
  2. INSULIN [Concomitant]
     Active Substance: INSULIN NOS
     Dosage: DOSE:10 UNIT(S)

REACTIONS (7)
  - Injury [Not Recovered/Not Resolved]
  - Drug administration error [Unknown]
  - Impaired healing [Not Recovered/Not Resolved]
  - Peripheral venous disease [Not Recovered/Not Resolved]
  - Ulcer [Not Recovered/Not Resolved]
  - Varicose vein [Not Recovered/Not Resolved]
  - Purulent discharge [Not Recovered/Not Resolved]

NARRATIVE: CASE EVENT DATE: 20100615
